FAERS Safety Report 8804504 (Version 1)
Quarter: 2012Q4

REPORT INFORMATION
  Report Type: 
  Country: US (occurrence: US)
  Receive Date: 20120924
  Receipt Date: 20120924
  Transmission Date: 20130627
  Serious: No
  Sender: FDA-Public Use
  Company Number: US-PFIZER INC-2012235147

PATIENT
  Sex: Male

DRUGS (2)
  1. ADVIL MIGRAINE [Suspect]
     Indication: MIGRAINE
     Dosage: UNK
     Route: 048
     Dates: start: 20120921
  2. ASPIRIN [Suspect]
     Indication: NEURALGIA
     Dosage: UNK

REACTIONS (2)
  - Drug effect decreased [Unknown]
  - Drug ineffective [Unknown]
